FAERS Safety Report 16785891 (Version 2)
Quarter: 2019Q4

REPORT INFORMATION
  Report Type: Spontaneous
  Country: JP (occurrence: JP)
  Receive Date: 20190909
  Receipt Date: 20191008
  Transmission Date: 20200122
  Serious: Yes (Other)
  Sender: FDA-Public Use
  Company Number: JP-PFIZER INC-2019370846

PATIENT
  Age: 23 Year
  Sex: Male

DRUGS (1)
  1. SILDENAFIL CITRATE. [Suspect]
     Active Substance: SILDENAFIL CITRATE
     Dosage: UNK

REACTIONS (5)
  - Dyschromatopsia [Unknown]
  - Retinal disorder [Unknown]
  - Visual impairment [Unknown]
  - Overdose [Unknown]
  - Photophobia [Unknown]
